FAERS Safety Report 13463995 (Version 1)
Quarter: 2017Q2

REPORT INFORMATION
  Report Type: Spontaneous
  Country: US (occurrence: US)
  Receive Date: 20170420
  Receipt Date: 20170420
  Transmission Date: 20170830
  Serious: Yes (Hospitalization)
  Sender: FDA-Public Use
  Company Number: US-ROCHE-698069

PATIENT
  Age: 22 Year
  Sex: Female
  Weight: 49.9 kg

DRUGS (3)
  1. ACCUTANE [Suspect]
     Active Substance: ISOTRETINOIN
     Route: 065
     Dates: start: 19941010, end: 19950120
  2. ACCUTANE [Suspect]
     Active Substance: ISOTRETINOIN
     Dosage: 10 MG IN MORNING, 40 MG AT NIGHT
     Route: 065
     Dates: start: 19971105, end: 199802
  3. ACCUTANE [Suspect]
     Active Substance: ISOTRETINOIN
     Indication: ACNE
     Route: 065
     Dates: start: 19921211, end: 19930316

REACTIONS (6)
  - Dry skin [Unknown]
  - Epistaxis [Unknown]
  - Lip dry [Unknown]
  - Rash pruritic [Unknown]
  - Inflammatory bowel disease [Unknown]
  - Crohn^s disease [Unknown]

NARRATIVE: CASE EVENT DATE: 19930112
